FAERS Safety Report 10148995 (Version 1)
Quarter: 2014Q2

REPORT INFORMATION
  Report Type: Spontaneous
  Country: US (occurrence: US)
  Receive Date: 20140502
  Receipt Date: 20140502
  Transmission Date: 20141212
  Serious: Yes (Disabling)
  Sender: FDA-Public Use
  Company Number: US-BRISTOL-MYERS SQUIBB COMPANY-20667606

PATIENT
  Age: 85 Year
  Sex: Female

DRUGS (3)
  1. ABILIFY [Suspect]
     Indication: DEMENTIA
     Dosage: Q48H
     Dates: start: 201201
  2. ABILIFY [Suspect]
     Indication: HALLUCINATION
     Dosage: Q48H
     Dates: start: 201201
  3. ABILIFY [Suspect]
     Indication: DEPRESSION
     Dosage: Q48H
     Dates: start: 201201

REACTIONS (4)
  - Fall [Unknown]
  - Peroneal nerve palsy [Unknown]
  - Head injury [Unknown]
  - Off label use [Unknown]
